FAERS Safety Report 8455317-0 (Version None)
Quarter: 2012Q2

REPORT INFORMATION
  Report Type: 
  Country: None (occurrence: None)
  Receive Date: 20120621
  Receipt Date: 20120618
  Transmission Date: 20120825
  Serious: Yes (Other)
  Sender: FDA-Public Use
  Company Number: US-PFIZER INC-2012146997

PATIENT
  Sex: Male
  Weight: 111.11 kg

DRUGS (3)
  1. MULTIVITAMINS AND IRON [Concomitant]
     Dosage: UNK
  2. TESTOSTERONE [Concomitant]
     Dosage: UNK
  3. VIAGRA [Suspect]
     Dosage: 300 MG, 1X/DAY
     Route: 048
     Dates: start: 20120618, end: 20120618

REACTIONS (4)
  - PENIS DISORDER [None]
  - PENILE OEDEMA [None]
  - INCORRECT DOSE ADMINISTERED [None]
  - PENILE VASCULAR DISORDER [None]
